FAERS Safety Report 4830598-0 (Version None)
Quarter: 2005Q4

REPORT INFORMATION
  Report Type: 
  Country: None (occurrence: None)
  Receive Date: 20051115
  Receipt Date: 20051102
  Transmission Date: 20060501
  Serious: Yes (Other)
  Sender: FDA-Public Use
  Company Number: 2005150066

PATIENT
  Age: 79 Year
  Sex: Female

DRUGS (2)
  1. DETRUSITOL SR (TOLTERODINE) [Suspect]
     Indication: URINARY INCONTINENCE
     Dosage: 4 MG (4 MG, 1 IN 1 D), ORAL
     Route: 048
     Dates: start: 20050411
  2. OVESTERIN (ESTRIOL) [Concomitant]

REACTIONS (2)
  - DEMENTIA [None]
  - MEMORY IMPAIRMENT [None]
